FAERS Safety Report 11214440 (Version 1)
Quarter: 2015Q2

REPORT INFORMATION
  Report Type: Spontaneous
  Country: DE (occurrence: DE)
  Receive Date: 20150624
  Receipt Date: 20150624
  Transmission Date: 20150821
  Serious: Yes (Other)
  Sender: FDA-Public Use
  Company Number: DE-ACCORD-031632

PATIENT
  Age: 25 Year
  Sex: Male

DRUGS (7)
  1. CYCLOPHOSPHAMIDE/CYCLOPHOSPHAMIDE MONOHYDRATE [Suspect]
     Active Substance: CYCLOPHOSPHAMIDE
     Indication: PRODUCT USED FOR UNKNOWN INDICATION
     Dosage: RECEIVED 2000MG ON 05-MAR-2012, 1800MG ON 26-MAR-2012, 1570MG ON 20.0.2012 AND ON 11-JUL-2012.
     Dates: start: 20120305, end: 20120711
  2. PREDNISONE. [Suspect]
     Active Substance: PREDNISONE
     Indication: PRODUCT USED FOR UNKNOWN INDICATION
     Dosage: RECEIVED 60 MG ON 05 TO 14-MAR-2012, ON 20 TO 22-JUN-2012 AND ON 11 TO 13-JUL-2012.
     Dates: start: 2012, end: 201207
  3. DOXORUBICIN [Suspect]
     Active Substance: DOXORUBICIN
     Indication: PRODUCT USED FOR UNKNOWN INDICATION
     Dosage: RECEIVED 58MG ON 05-MAR-2012, 55MG ON 26-MAR-2012, 57MG ON 20-JUN-2012 AND ON 12-JUL-2012.
     Dates: start: 20120305, end: 20120712
  4. VINCRISTINE [Suspect]
     Active Substance: VINCRISTINE
     Indication: PRODUCT USED FOR UNKNOWN INDICATION
     Dosage: RECEIVED ON 12-MAR-2012 AND 27-JUN-2012.
     Dates: start: 20120312, end: 20120627
  5. ETOPOSIDE. [Suspect]
     Active Substance: ETOPOSIDE
     Indication: PRODUCT USED FOR UNKNOWN INDICATION
     Dosage: RECEIVED 330MG ON 05 TO 07-MAR-2012, 280MG ON 26 TO 28-MAR-2012.
     Dates: start: 20120305, end: 20120713
  6. PROCARBAZINE [Suspect]
     Active Substance: PROCARBAZINE
     Indication: PRODUCT USED FOR UNKNOWN INDICATION
     Dosage: RECEIVED 150MG ON 05 TO 11-MAR-2012, 26 TO 28-MAR-2012, 20 TO 22-JUN-2012 AND 11 TO 13-JUL-2012.
     Dates: start: 2012, end: 201207
  7. BLEOMYCIN [Suspect]
     Active Substance: BLEOMYCIN SULFATE
     Indication: PRODUCT USED FOR UNKNOWN INDICATION
     Dosage: RECEIVED 17 MG ON 12-MAR-2012 AND ON 27-JUN-2012
     Dates: start: 2012, end: 201207

REACTIONS (1)
  - Tooth loss [Not Recovered/Not Resolved]

NARRATIVE: CASE EVENT DATE: 201408
